FAERS Safety Report 10203966 (Version 1)
Quarter: 2014Q2

REPORT INFORMATION
  Report Type: Spontaneous
  Country: US (occurrence: US)
  Receive Date: 20140529
  Receipt Date: 20140529
  Transmission Date: 20141212
  Serious: Yes (Hospitalization)
  Sender: FDA-Public Use
  Company Number: US-B.I. PHARMACEUTICALS,INC./RIDGEFIELD-2014-BI-22962BP

PATIENT
  Age: 75 Year
  Sex: Female
  Weight: 82 kg

DRUGS (10)
  1. PRADAXA [Suspect]
     Indication: ATRIAL FIBRILLATION
     Dosage: 300 MG
     Route: 048
     Dates: start: 201308
  2. LISINOPRIL [Concomitant]
     Indication: HYPERTENSION
     Dosage: 40 MG
     Route: 048
  3. AMLODIPINE [Concomitant]
     Indication: HYPERTENSION
     Dosage: 5 MG
     Route: 048
  4. ZOCOR [Concomitant]
     Indication: BLOOD CHOLESTEROL INCREASED
     Dosage: 80 MG
     Route: 048
  5. LASIX [Concomitant]
     Indication: PULMONARY OEDEMA
     Dosage: 160 MG
     Route: 048
  6. POTASSIUM [Concomitant]
     Dosage: 20 MEQ
     Route: 048
  7. FERROUS SULFATE [Concomitant]
     Indication: ANAEMIA
     Route: 048
  8. KONIPIN [Concomitant]
     Indication: SLEEP DISORDER
     Dosage: 1 MG
     Route: 048
  9. CALCIUM [Concomitant]
     Route: 048
  10. VITAMIN D [Concomitant]
     Route: 048

REACTIONS (2)
  - Myocardial infarction [Recovered/Resolved]
  - Visual impairment [Unknown]
